FAERS Safety Report 21074968 (Version 1)
Quarter: 2022Q3

REPORT INFORMATION
  Report Type: Spontaneous
  Country: BR (occurrence: BR)
  Receive Date: 20220713
  Receipt Date: 20220713
  Transmission Date: 20221026
  Serious: Yes (Hospitalization)
  Sender: FDA-Public Use
  Company Number: BR-STRIDES ARCOLAB LIMITED-2022SP008720

PATIENT
  Age: 9 Year
  Sex: Female

DRUGS (3)
  1. PREDNISOLONE [Suspect]
     Active Substance: PREDNISOLONE
     Indication: Systemic lupus erythematosus
     Dosage: 1 MILLIGRAM/KILOGRAM
     Route: 065
  2. AZATHIOPRINE [Suspect]
     Active Substance: AZATHIOPRINE
     Indication: Systemic lupus erythematosus
     Dosage: 2 MILLIGRAM/KILOGRAM
     Route: 065
  3. HYDROXYCHLOROQUINE [Concomitant]
     Active Substance: HYDROXYCHLOROQUINE
     Indication: Polyarthritis
     Dosage: 6.5 MILLIGRAM/KILOGRAM
     Route: 065

REACTIONS (5)
  - Cardiac tamponade [Recovered/Resolved]
  - Systemic lupus erythematosus [Recovered/Resolved]
  - Myocarditis [Recovered/Resolved]
  - Pericarditis [Recovered/Resolved]
  - Cytomegalovirus infection [Recovered/Resolved]
